FAERS Safety Report 9648647 (Version 1)
Quarter: 2013Q4

REPORT INFORMATION
  Report Type: Spontaneous
  Country: FR (occurrence: FR)
  Receive Date: 20131028
  Receipt Date: 20131028
  Transmission Date: 20140711
  Serious: Yes (Life-Threatening, Hospitalization)
  Sender: FDA-Public Use
  Company Number: FR-ASTRAZENECA-2013SE78062

PATIENT
  Age: 9146 Day
  Sex: Female

DRUGS (4)
  1. DIPRIVAN [Suspect]
     Route: 042
     Dates: start: 20130916, end: 20130916
  2. ATRACURIUM HOSPIRA [Suspect]
     Route: 042
     Dates: start: 20130916, end: 20130916
  3. SUFENTA [Suspect]
     Route: 042
     Dates: start: 20130916, end: 20130916
  4. HYPNOVEL [Suspect]
     Route: 042
     Dates: start: 20130916, end: 20130916

REACTIONS (1)
  - Shock [Recovering/Resolving]
